FAERS Safety Report 11752616 (Version 1)
Quarter: 2015Q4

REPORT INFORMATION
  Report Type: Spontaneous
  Country: US (occurrence: US)
  Receive Date: 20151119
  Receipt Date: 20151119
  Transmission Date: 20160304
  Serious: No
  Sender: FDA-Public Use
  Company Number: US-B.I. PHARMACEUTICALS,INC./RIDGEFIELD-2015-BI-62183BP

PATIENT
  Age: 71 Year
  Sex: Male
  Weight: 79 kg

DRUGS (13)
  1. AMLODIPINE [Concomitant]
     Active Substance: AMLODIPINE BESYLATE
     Indication: HYPERTENSION
     Dosage: 10 MG
     Route: 048
  2. SOTALOL. [Concomitant]
     Active Substance: SOTALOL
     Indication: ATRIAL FIBRILLATION
     Dosage: 60 MG
     Route: 048
  3. OMEPRAZOLE. [Concomitant]
     Active Substance: OMEPRAZOLE
     Indication: PRODUCT USED FOR UNKNOWN INDICATION
     Dosage: 40 MG
     Route: 048
  4. VITAMIN B12 [Concomitant]
     Active Substance: CYANOCOBALAMIN
     Indication: ANAEMIA
     Route: 058
  5. BUDESONIDE. [Concomitant]
     Active Substance: BUDESONIDE
     Indication: COLITIS
     Dosage: 3 MG
     Route: 048
  6. METOPROLOL [Concomitant]
     Active Substance: METOPROLOL
     Indication: HYPERTENSION
  7. PROAIR HFA [Concomitant]
     Active Substance: ALBUTEROL SULFATE
     Indication: PRODUCT USED FOR UNKNOWN INDICATION
     Route: 055
  8. SPIRIVA [Suspect]
     Active Substance: TIOTROPIUM BROMIDE MONOHYDRATE
     Indication: CHRONIC OBSTRUCTIVE PULMONARY DISEASE
     Dosage: 18 MCG
     Route: 055
     Dates: start: 2015
  9. IRBESARTAN. [Concomitant]
     Active Substance: IRBESARTAN
     Indication: HYPERTENSION
     Dosage: 300 MG
     Route: 048
  10. ASPIRIN. [Concomitant]
     Active Substance: ASPIRIN
     Indication: CORONARY ARTERY BYPASS
     Dosage: 81 MG
     Route: 048
  11. ATORVASTATIN [Concomitant]
     Active Substance: ATORVASTATIN
     Indication: BLOOD CHOLESTEROL INCREASED
     Dosage: 40 MG
     Route: 048
  12. METOPROLOL [Concomitant]
     Active Substance: METOPROLOL
     Indication: ATRIAL FIBRILLATION
     Dosage: 37.5 MG
     Route: 048
  13. VITAMIN D [Concomitant]
     Active Substance: CHOLECALCIFEROL
     Indication: VITAMIN D DEFICIENCY
     Dosage: 1000 U
     Route: 048

REACTIONS (2)
  - Visual impairment [Not Recovered/Not Resolved]
  - Trichiasis [Recovered/Resolved]

NARRATIVE: CASE EVENT DATE: 201503
